FAERS Safety Report 18534646 (Version 1)
Quarter: 2020Q4

REPORT INFORMATION
  Report Type: Report from Study
  Country: US (occurrence: US)
  Receive Date: 20201123
  Receipt Date: 20201123
  Transmission Date: 20210114
  Serious: Yes (Hospitalization)
  Sender: FDA-Public Use
  Company Number: US-MYLANLABS-2020M1068461

PATIENT
  Age: 63 Year
  Sex: Female
  Weight: 54.43 kg

DRUGS (3)
  1. GLATIRAMER ACETATE INJECTION [Suspect]
     Active Substance: GLATIRAMER ACETATE
     Indication: RELAPSING-REMITTING MULTIPLE SCLEROSIS
     Dosage: 40 MILLIGRAM, 3XW (THREE TIMES PER WEEK)
     Route: 058
     Dates: start: 20200803
  2. GLATIRAMER ACETATE INJECTION [Suspect]
     Active Substance: GLATIRAMER ACETATE
     Dosage: 40 MILLIGRAM, 3XW (THREE TIMES PER WEEK)
     Route: 058
     Dates: end: 202010
  3. GLATIRAMER ACETATE INJECTION [Suspect]
     Active Substance: GLATIRAMER ACETATE
     Indication: MULTIPLE SCLEROSIS
     Dosage: 40 MILLIGRAM, 3XW (THREE TIMES PER WEEK)
     Route: 058

REACTIONS (11)
  - Influenza like illness [Unknown]
  - Malaise [Unknown]
  - Injection site extravasation [Recovered/Resolved]
  - Blood sodium decreased [Unknown]
  - Injection site haemorrhage [Unknown]
  - Fear of injection [Unknown]
  - Myocardial infarction [Unknown]
  - Nausea [Unknown]
  - Injection site pain [Not Recovered/Not Resolved]
  - Dizziness [Unknown]
  - Pyrexia [Recovering/Resolving]

NARRATIVE: CASE EVENT DATE: 2020
